FAERS Safety Report 5375644-3 (Version None)
Quarter: 2007Q2

REPORT INFORMATION
  Report Type: 
  Country: None (occurrence: None)
  Receive Date: 20070629
  Receipt Date: 20070621
  Transmission Date: 20071010
  Serious: Yes (Hospitalization)
  Sender: FDA-Public Use
  Company Number: AU-GENENTECH-237937

PATIENT
  Sex: Female
  Weight: 68.05 kg

DRUGS (10)
  1. RITUXIMAB [Suspect]
     Indication: CHRONIC LYMPHOCYTIC LEUKAEMIA
     Dosage: 890 MG, X3
     Route: 042
  2. FLUDARABINE PHOSPHATE [Suspect]
     Indication: CHRONIC LYMPHOCYTIC LEUKAEMIA
     Dosage: 44 MG, X3
     Route: 042
  3. CYCLOPHOSPHAMIDE [Suspect]
     Indication: CHRONIC LYMPHOCYTIC LEUKAEMIA
     Dosage: 440 MG, X3
     Route: 042
  4. PANTOPRAZOLE SODIUM [Concomitant]
     Indication: DRUG USE FOR UNKNOWN INDICATION
     Dosage: 80 MG, UNK
     Dates: start: 20070313
  5. ASPIRIN [Concomitant]
     Indication: DRUG USE FOR UNKNOWN INDICATION
     Dosage: 100 MG, UNK
     Dates: start: 20070313, end: 20070316
  6. MOCLOBEMIDE [Concomitant]
     Indication: DRUG USE FOR UNKNOWN INDICATION
     Dosage: 300 MG, UNK
     Dates: start: 20070313
  7. OGEN [Concomitant]
     Indication: DRUG USE FOR UNKNOWN INDICATION
     Dosage: 1.25 MG, UNK
     Dates: start: 20070313
  8. PROVERA [Concomitant]
     Indication: DRUG USE FOR UNKNOWN INDICATION
     Dosage: 2.5 MG, UNK
     Dates: start: 20070313
  9. TEMAZEPAM [Concomitant]
     Indication: DRUG USE FOR UNKNOWN INDICATION
     Dosage: 25 MG, UNK
     Dates: start: 20070313, end: 20070313
  10. PANADOL [Concomitant]
     Indication: DRUG USE FOR UNKNOWN INDICATION
     Dosage: 1 G, UNK
     Dates: start: 20070313, end: 20070315

REACTIONS (1)
  - PNEUMONIA [None]
